FAERS Safety Report 21293737 (Version 2)
Quarter: 2022Q3

REPORT INFORMATION
  Report Type: Report from Study
  Country: US (occurrence: US)
  Receive Date: 20220905
  Receipt Date: 20220906
  Transmission Date: 20221026
  Serious: Yes (Death, Hospitalization)
  Sender: FDA-Public Use
  Company Number: US-NOVARTISPH-NVSC2022US196416

PATIENT
  Sex: Female

DRUGS (2)
  1. TREPROSTINIL [Suspect]
     Active Substance: TREPROSTINIL
     Indication: Pulmonary arterial hypertension
     Dosage: 21.90 NG/KG/MIN,  CONT
     Route: 058
     Dates: start: 20220809
  2. TREPROSTINIL [Suspect]
     Active Substance: TREPROSTINIL
     Dosage: 21.90 NG/KG/MIN, CONT (0.02 ML/ HOUR, USING 2 ML TREPROSTINIL 5 MG/ML EVERY 72 HOURS)
     Route: 058
     Dates: start: 20220823

REACTIONS (3)
  - Autoimmune disorder [Fatal]
  - Disease complication [Fatal]
  - Cerebrovascular accident [Unknown]
